FAERS Safety Report 14518165 (Version 3)
Quarter: 2018Q2

REPORT INFORMATION
  Report Type: Report from Study
  Country: CA (occurrence: CA)
  Receive Date: 20180212
  Receipt Date: 20180427
  Transmission Date: 20180711
  Serious: Yes (Death, Hospitalization, Other)
  Sender: FDA-Public Use
  Company Number: CA-APOPHARMA-2018AP006351

PATIENT
  Age: 79 Year
  Sex: Male

DRUGS (1)
  1. FERRIPROX [Suspect]
     Active Substance: DEFERIPRONE
     Indication: MYELODYSPLASTIC SYNDROME
     Dosage: 120 MG/KG, QD
     Route: 048
     Dates: start: 20151017, end: 20180117

REACTIONS (3)
  - Sepsis [Not Recovered/Not Resolved]
  - Pneumonia [Fatal]
  - General physical health deterioration [Fatal]

NARRATIVE: CASE EVENT DATE: 20180109
